FAERS Safety Report 4719787-3 (Version None)
Quarter: 2005Q3

REPORT INFORMATION
  Report Type: 
  Country: None (occurrence: None)
  Receive Date: 20050721
  Receipt Date: 20041028
  Transmission Date: 20060218
  Serious: No
  Sender: FDA-Public Use
  Company Number: US-GLAXOSMITHKLINE-A0532369A

PATIENT
  Age: 65 Year
  Sex: Male

DRUGS (8)
  1. AVANDIA [Suspect]
     Dosage: 8MG PER DAY
     Route: 048
  2. ALBUTEROL [Concomitant]
  3. COMBIVENT [Concomitant]
  4. FLOMAX [Concomitant]
  5. AVANDIA [Concomitant]
  6. UNKNOWN MEDICATION [Concomitant]
  7. BEXTRA [Concomitant]
  8. LIPITOR [Concomitant]

REACTIONS (2)
  - DYSPEPSIA [None]
  - WEIGHT INCREASED [None]
